FAERS Safety Report 15007576 (Version 3)
Quarter: 2018Q2

REPORT INFORMATION
  Report Type: Report from Study
  Country: JP (occurrence: JP)
  Receive Date: 20180613
  Receipt Date: 20180621
  Transmission Date: 20180711
  Serious: Yes (Hospitalization)
  Sender: FDA-Public Use
  Company Number: JP-ASTRAZENECA-2018SE75770

PATIENT
  Age: 29518 Day
  Sex: Male

DRUGS (14)
  1. NORMAL SALINE [Concomitant]
     Active Substance: SODIUM CHLORIDE
     Indication: DEHYDRATION
     Route: 042
     Dates: start: 20180503
  2. LOXOPROFEN [Concomitant]
     Active Substance: LOXOPROFEN
     Indication: MUSCULOSKELETAL PAIN
     Route: 048
     Dates: start: 20180507
  3. MEDI4736 [Suspect]
     Active Substance: DURVALUMAB
     Indication: HEPATOCELLULAR CARCINOMA
     Route: 042
     Dates: start: 20180425, end: 20180425
  4. LOXONIN [Concomitant]
     Active Substance: LOXOPROFEN SODIUM
     Indication: ARTHRALGIA
     Dosage: 60.0MG AS REQUIRED
     Route: 048
  5. INSIDE PAP [Concomitant]
     Indication: ARTHRALGIA
     Dosage: 70.0MG AS REQUIRED
     Route: 061
  6. REBAMIPIDE [Concomitant]
     Active Substance: REBAMIPIDE
     Indication: GASTRITIS PROPHYLAXIS
     Route: 048
     Dates: start: 20180507
  7. MEDI4736 [Suspect]
     Active Substance: DURVALUMAB
     Indication: HEPATOCELLULAR CARCINOMA
     Route: 042
     Dates: start: 20180523, end: 20180523
  8. ALLOPURINOL. [Concomitant]
     Active Substance: ALLOPURINOL
     Indication: HYPERURICAEMIA
     Route: 048
  9. ACTOS [Concomitant]
     Active Substance: PIOGLITAZONE HYDROCHLORIDE
     Indication: TYPE 2 DIABETES MELLITUS
     Route: 048
  10. BETANIS [Concomitant]
     Active Substance: MIRABEGRON
     Indication: POLLAKIURIA
     Route: 048
  11. BETANIS [Concomitant]
     Active Substance: MIRABEGRON
     Indication: POLLAKIURIA
     Route: 048
  12. MEDI4736 [Suspect]
     Active Substance: DURVALUMAB
     Indication: HEPATOCELLULAR CARCINOMA
     Route: 042
     Dates: start: 20180328, end: 20180328
  13. MAGNESIUM OXIDE. [Concomitant]
     Active Substance: MAGNESIUM OXIDE
     Indication: CONSTIPATION
     Dosage: 330.0MG AS REQUIRED
     Route: 048
     Dates: start: 20180516
  14. CONIEL [Concomitant]
     Active Substance: BENIDIPINE HYDROCHLORIDE
     Indication: HYPERTENSION
     Route: 048

REACTIONS (1)
  - Muscular weakness [Not Recovered/Not Resolved]

NARRATIVE: CASE EVENT DATE: 20180606
